FAERS Safety Report 7584142-8 (Version None)
Quarter: 2011Q2

REPORT INFORMATION
  Report Type: 
  Country: None (occurrence: None)
  Receive Date: 20110630
  Receipt Date: 20110627
  Transmission Date: 20111010
  Serious: Yes (Hospitalization)
  Sender: FDA-Public Use
  Company Number: US-PFIZER INC-2011089663

PATIENT
  Sex: Female

DRUGS (27)
  1. DUONEB [Concomitant]
  2. XOPENEX [Concomitant]
  3. DIPHENHYDRAMINE [Concomitant]
  4. PATANOL [Concomitant]
  5. VITAMIN D [Concomitant]
     Dosage: 2000 IU, UNK
  6. MISOPROSTOL [Concomitant]
  7. IRON [Concomitant]
  8. TOBI [Suspect]
     Dosage: 300 MG, 2X/DAY
     Route: 055
     Dates: start: 20010101
  9. SKELAXIN [Suspect]
  10. ASTELIN [Concomitant]
  11. ASCORBIC ACID [Concomitant]
     Dosage: 1000 MG, UNK
  12. VIOXX [Suspect]
  13. IBANDRONATE SODIUM [Concomitant]
  14. BUTALBITAL AND CAFFEINE AND PARACETAMOL [Concomitant]
  15. VITAMIN E [Concomitant]
     Dosage: 400 GY.
  16. PROTONIX [Suspect]
     Dosage: UNK
  17. QVAR 40 [Concomitant]
  18. ALPHA LIPOIC ACID [Concomitant]
  19. MAGNESIUM [Concomitant]
  20. SULFAMETHOXAZOLE [Suspect]
  21. ALBUTEROL SULFATE AUTOHALER [Concomitant]
  22. THEOPHYLLINE [Concomitant]
  23. FLEXERIL [Concomitant]
  24. NAPROXEN [Concomitant]
  25. ACIPHEX [Concomitant]
  26. ACIDOPHILUS ^ZYMA^ [Concomitant]
  27. CALCIUM [Concomitant]

REACTIONS (5)
  - GASTRIC ULCER [None]
  - CEREBROVASCULAR ACCIDENT [None]
  - MUSCLE SPASMS [None]
  - ANAEMIA [None]
  - NAUSEA [None]
